FAERS Safety Report 5795076-3 (Version None)
Quarter: 2008Q2

REPORT INFORMATION
  Report Type: 
  Country: None (occurrence: None)
  Receive Date: 20080630
  Receipt Date: 20080401
  Transmission Date: 20081010
  Serious: No
  Sender: FDA-Public Use
  Company Number: US-BRISTOL-MYERS SQUIBB COMPANY-14132633

PATIENT
  Age: 55 Year
  Sex: Female
  Weight: 93 kg

DRUGS (11)
  1. ORENCIA [Suspect]
     Indication: RHEUMATOID ARTHRITIS
     Dosage: RECEIVED 3 INFUSIONS ON  IN DEC-2007 AND ANOTHER INFUSION ON 26-MAR-2008
     Route: 042
     Dates: start: 20071201
  2. METHOTREXATE [Concomitant]
  3. PREDNISONE [Concomitant]
  4. TRAZODONE HCL [Concomitant]
  5. HYDROCODONE [Concomitant]
  6. INDERAL LA [Concomitant]
  7. CLONAZEPAM [Concomitant]
  8. AMBIEN [Concomitant]
  9. FLUOXETINE [Concomitant]
  10. FOLIC ACID [Concomitant]
  11. CYCLOBENZAPRINE HCL [Concomitant]

REACTIONS (1)
  - NASOPHARYNGITIS [None]
